FAERS Safety Report 9523733 (Version 3)
Quarter: 2013Q4

REPORT INFORMATION
  Report Type: Spontaneous
  Country: FR (occurrence: FR)
  Receive Date: 20130914
  Receipt Date: 20131018
  Transmission Date: 20140711
  Serious: Yes (Death, Hospitalization)
  Sender: FDA-Public Use
  Company Number: FR-ROCHE-1275724

PATIENT
  Age: 75 Year
  Sex: Female
  Weight: 69 kg

DRUGS (13)
  1. ROACTEMRA [Suspect]
     Indication: RHEUMATOID ARTHRITIS
     Dosage: 40 INFUSION
     Route: 042
     Dates: start: 20100410
  2. ROACTEMRA [Suspect]
     Route: 042
     Dates: start: 20130401
  3. ROACTEMRA [Suspect]
     Route: 042
     Dates: start: 20130513
  4. ROACTEMRA [Suspect]
     Route: 042
     Dates: start: 20130610
  5. ROACTEMRA [Suspect]
     Route: 042
     Dates: start: 20130708, end: 20130708
  6. CORTANCYL [Suspect]
     Indication: RHEUMATOID ARTHRITIS
     Route: 048
     Dates: start: 2007, end: 20130731
  7. IMETH [Concomitant]
     Indication: RHEUMATOID ARTHRITIS
     Route: 048
     Dates: start: 2007, end: 2013
  8. APROVEL [Concomitant]
     Dosage: 300 1 DOSE IN THE EVENING
     Route: 065
  9. DIFFU K [Concomitant]
     Dosage: 1 DOSE IN THE MORNING
     Route: 065
  10. OMEPRAZOLE [Concomitant]
     Dosage: 10 1 DOSE IN THE EVENING
     Route: 065
  11. DAFALGAN [Concomitant]
     Route: 065
  12. FOSAVANCE [Concomitant]
     Dosage: 1/WEEK
     Route: 065
  13. XANAX [Concomitant]
     Dosage: 0.50 1 DOSE IN THE EVENING
     Route: 065

REACTIONS (4)
  - Multi-organ failure [Fatal]
  - Large intestine perforation [Fatal]
  - Peritonitis [Fatal]
  - Septic shock [Fatal]
